FAERS Safety Report 7310985-1 (Version None)
Quarter: 2011Q1

REPORT INFORMATION
  Report Type: 
  Country: None (occurrence: None)
  Receive Date: 20110224
  Receipt Date: 20110217
  Transmission Date: 20110831
  Serious: Yes (Death)
  Sender: FDA-Public Use
  Company Number: US-JNJFOC-20110200716

PATIENT
  Age: 26 Year
  Sex: Male

DRUGS (2)
  1. NUCYNTA [Suspect]
     Indication: ANALGESIC THERAPY
     Route: 045
  2. PRESCRIPTION MEDICATIONS UNSPECIFIED [Suspect]
     Indication: PRODUCT USED FOR UNKNOWN INDICATION
     Route: 065

REACTIONS (4)
  - INTENTIONAL DRUG MISUSE [None]
  - INCORRECT ROUTE OF DRUG ADMINISTRATION [None]
  - DEATH [None]
  - SUBSTANCE ABUSE [None]
